FAERS Safety Report 9730380 (Version 1)
Quarter: 2013Q4

REPORT INFORMATION
  Report Type: Report from Study
  Country: US (occurrence: US)
  Receive Date: 20131204
  Receipt Date: 20131204
  Transmission Date: 20140711
  Serious: Yes (Death)
  Sender: FDA-Public Use
  Company Number: US-ROCHE-1310696

PATIENT
  Age: 74 Year
  Sex: Male

DRUGS (2)
  1. AVASTIN [Suspect]
     Indication: METASTATIC NEOPLASM
     Dosage: IN 100 ML NACL 0.9%
     Route: 042
     Dates: start: 20120726
  2. TORISEL [Concomitant]
     Route: 042
     Dates: start: 20120726

REACTIONS (1)
  - Death [Fatal]
